FAERS Safety Report 5107193-1 (Version None)
Quarter: 2006Q3

REPORT INFORMATION
  Report Type: 
  Country: None (occurrence: None)
  Receive Date: 20060913
  Receipt Date: 20060829
  Transmission Date: 20061208
  Serious: Yes (Death)
  Sender: FDA-Public Use
  Company Number: MED000055

PATIENT

DRUGS (16)
  1. VANCOCIN HYDROCHLORIDE [Suspect]
     Indication: TOXIC EPIDERMAL NECROLYSIS
  2. TOBRAMYCIN VIAL [Concomitant]
  3. PEDIATRIC [Concomitant]
  4. ERYTHROMYCIN [Concomitant]
  5. PIPERACILLIN-TOAZOBACTAM [Concomitant]
  6. PANTOPRAZOLE SODIUM [Concomitant]
  7. LORAZEPAM [Concomitant]
  8. MORPHINE [Concomitant]
  9. ALBUTEROL [Concomitant]
  10. IPRATROPIUM BROMIDE [Concomitant]
  11. EPOGEN [Concomitant]
  12. FERROUS SULFATE TAB [Concomitant]
  13. METOCLOPRAMIDE [Concomitant]
  14. NPH INSULIN [Concomitant]
  15. CLONIDINE [Concomitant]
  16. TPN [Concomitant]

REACTIONS (9)
  - BACTERIA SPUTUM IDENTIFIED [None]
  - CHOLESTASIS [None]
  - ENTEROBACTER INFECTION [None]
  - ERYTHEMA MULTIFORME [None]
  - HAEMODIALYSIS [None]
  - LEUKOCYTOCLASTIC VASCULITIS [None]
  - LEUKOCYTOSIS [None]
  - THERAPY NON-RESPONDER [None]
  - TOXIC EPIDERMAL NECROLYSIS [None]
